FAERS Safety Report 18337587 (Version 2)
Quarter: 2021Q2

REPORT INFORMATION
  Report Type: Spontaneous
  Country: US (occurrence: US)
  Receive Date: 20201002
  Receipt Date: 20210416
  Transmission Date: 20210717
  Serious: Yes (Other)
  Sender: FDA-Public Use
  Company Number: US-009507513-1905USA010048

PATIENT
  Sex: Female
  Weight: 61.22 kg

DRUGS (10)
  1. ZOSTAVAX [Suspect]
     Active Substance: VARICELLA-ZOSTER VIRUS STRAIN OKA/MERCK LIVE ANTIGEN
     Indication: PROPHYLAXIS
     Route: 030
     Dates: start: 20170623
  2. STERILE DILUENT (WATER) [Suspect]
     Active Substance: WATER
     Indication: PROPHYLAXIS
     Dosage: UNK
     Route: 030
     Dates: start: 20170504, end: 20170504
  3. JANUMET [Concomitant]
     Active Substance: METFORMIN HYDROCHLORIDE\SITAGLIPTIN PHOSPHATE
     Indication: DIABETES MELLITUS
     Dosage: DOSAGE: 50 MG/1000
     Dates: start: 2012
  4. PANTOPRAZOLE [Concomitant]
     Active Substance: PANTOPRAZOLE
     Indication: GASTROOESOPHAGEAL REFLUX DISEASE
     Dosage: 40 MILLIGRAM, QD
     Route: 048
  5. LOVAZA [Concomitant]
     Active Substance: OMEGA-3-ACID ETHYL ESTERS
     Indication: BLOOD CHOLESTEROL
     Dosage: 2 MILLIGRAM
  6. CITALOPRAM [Concomitant]
     Active Substance: CITALOPRAM HYDROBROMIDE
     Indication: DEPRESSION
     Dosage: 40 MILLIGRAM
     Dates: start: 2015, end: 2020
  7. NAPROXEN. [Concomitant]
     Active Substance: NAPROXEN
     Indication: RHEUMATOID ARTHRITIS
     Dosage: 500 MILLIGRAM
     Dates: start: 2015
  8. CITALOPRAM [Concomitant]
     Active Substance: CITALOPRAM HYDROBROMIDE
     Dosage: 1 TABLET, 1 TIME PER DAY
     Route: 048
  9. JANUMET [Concomitant]
     Active Substance: METFORMIN HYDROCHLORIDE\SITAGLIPTIN PHOSPHATE
     Dosage: 50?1000 MG TABLET, 1 TIME PER DAY ONE TAB, PO, QD WITH SUPPER
     Route: 048
  10. LOVAZA [Concomitant]
     Active Substance: OMEGA-3-ACID ETHYL ESTERS
     Dosage: 1 GRAM, BID
     Route: 048

REACTIONS (21)
  - Eye pain [Recovered/Resolved]
  - Memory impairment [Unknown]
  - Diabetic neuropathy [Not Recovered/Not Resolved]
  - Depression [Not Recovered/Not Resolved]
  - Hemianopia homonymous [Recovering/Resolving]
  - Migraine with aura [Not Recovered/Not Resolved]
  - Vitamin B complex deficiency [Unknown]
  - Incorrect route of product administration [Unknown]
  - Blindness [Unknown]
  - Ischaemic cerebral infarction [Unknown]
  - Coordination abnormal [Unknown]
  - Cerebral disorder [Unknown]
  - Fatigue [Unknown]
  - Insomnia [Unknown]
  - Vitamin D deficiency [Unknown]
  - Cataract operation [Unknown]
  - Visual impairment [Not Recovered/Not Resolved]
  - Acute sinusitis [Unknown]
  - Pain [Not Recovered/Not Resolved]
  - Headache [Unknown]
  - Gout [Not Recovered/Not Resolved]

NARRATIVE: CASE EVENT DATE: 20170504
